FAERS Safety Report 19462118 (Version 1)
Quarter: 2021Q2

REPORT INFORMATION
  Report Type: Report from Study
  Country: FI (occurrence: FI)
  Receive Date: 20210625
  Receipt Date: 20210625
  Transmission Date: 20210717
  Serious: Yes (Hospitalization)
  Sender: FDA-Public Use
  Company Number: FI-ASTRAZENECA-2021A001503

PATIENT
  Age: 25643 Day
  Sex: Female

DRUGS (41)
  1. CARBOPLATIN. [Suspect]
     Active Substance: CARBOPLATIN
     Indication: OVARIAN CANCER
     Dosage: 530.0MG ONCE/SINGLE ADMINISTRATION
     Route: 065
     Dates: start: 20200702, end: 20200702
  2. CARBOPLATIN. [Suspect]
     Active Substance: CARBOPLATIN
     Indication: OVARIAN CANCER
     Dosage: 530.0MG ONCE/SINGLE ADMINISTRATION
     Route: 065
     Dates: start: 20200813, end: 20200813
  3. BEVACIZUMAB. [Suspect]
     Active Substance: BEVACIZUMAB
     Indication: OVARIAN CANCER
     Dosage: 990.0MG ONCE/SINGLE ADMINISTRATION
     Route: 065
     Dates: start: 20200901, end: 20200901
  4. COSOPT [Concomitant]
     Active Substance: DORZOLAMIDE HYDROCHLORIDE\TIMOLOL MALEATE
     Indication: GLAUCOMA
     Route: 047
     Dates: start: 20191003
  5. LUMIGAN [Concomitant]
     Active Substance: BIMATOPROST
     Indication: GLAUCOMA
     Route: 047
     Dates: start: 20191003
  6. DURVALUMAB. [Suspect]
     Active Substance: DURVALUMAB
     Indication: OVARIAN CANCER
     Dosage: 1120.0MG ONCE/SINGLE ADMINISTRATION
     Route: 042
     Dates: start: 20201215, end: 20201215
  7. CARBOPLATIN. [Suspect]
     Active Substance: CARBOPLATIN
     Indication: OVARIAN CANCER
     Dosage: 480.0MG ONCE/SINGLE ADMINISTRATION
     Route: 065
     Dates: start: 20200721, end: 20200721
  8. PACLITAXEL. [Suspect]
     Active Substance: PACLITAXEL
     Indication: OVARIAN CANCER
     Dosage: 289.0MG ONCE/SINGLE ADMINISTRATION
     Route: 065
     Dates: start: 20200702, end: 20200702
  9. PACLITAXEL. [Suspect]
     Active Substance: PACLITAXEL
     Indication: OVARIAN CANCER
     Dosage: 289.0MG ONCE/SINGLE ADMINISTRATION
     Route: 065
     Dates: start: 20200721, end: 20200721
  10. PACLITAXEL. [Suspect]
     Active Substance: PACLITAXEL
     Indication: OVARIAN CANCER
     Dosage: 289.0MG ONCE/SINGLE ADMINISTRATION
     Route: 065
     Dates: start: 20201013, end: 20201013
  11. BEVACIZUMAB. [Suspect]
     Active Substance: BEVACIZUMAB
     Indication: OVARIAN CANCER
     Dosage: 990.0MG ONCE/SINGLE ADMINISTRATION
     Route: 065
     Dates: start: 20200813, end: 20200813
  12. BEVACIZUMAB. [Suspect]
     Active Substance: BEVACIZUMAB
     Indication: OVARIAN CANCER
     Dosage: 990.0MG ONCE/SINGLE ADMINISTRATION
     Route: 065
     Dates: start: 20200922, end: 20200922
  13. BEVACIZUMAB. [Suspect]
     Active Substance: BEVACIZUMAB
     Indication: OVARIAN CANCER
     Dosage: 915.0MG ONCE/SINGLE ADMINISTRATION
     Route: 065
     Dates: start: 20201124, end: 20201124
  14. BEVACIZUMAB. [Suspect]
     Active Substance: BEVACIZUMAB
     Indication: OVARIAN CANCER
     Dosage: 915.0MG ONCE/SINGLE ADMINISTRATION
     Route: 065
     Dates: start: 20210309, end: 20210309
  15. DURVALUMAB. [Suspect]
     Active Substance: DURVALUMAB
     Indication: OVARIAN CANCER
     Dosage: 1120.0MG ONCE/SINGLE ADMINISTRATION
     Route: 042
     Dates: start: 20200922, end: 20200922
  16. CARBOPLATIN. [Suspect]
     Active Substance: CARBOPLATIN
     Indication: OVARIAN CANCER
     Dosage: 530.0MG ONCE/SINGLE ADMINISTRATION
     Route: 065
     Dates: start: 20200922, end: 20200922
  17. PACLITAXEL. [Suspect]
     Active Substance: PACLITAXEL
     Indication: OVARIAN CANCER
     Dosage: 289.0MG ONCE/SINGLE ADMINISTRATION
     Route: 065
     Dates: start: 20200922, end: 20200922
  18. DURVALUMAB. [Suspect]
     Active Substance: DURVALUMAB
     Indication: OVARIAN CANCER
     Dosage: 1120.0MG ONCE/SINGLE ADMINISTRATION
     Route: 042
     Dates: start: 20201103, end: 20201103
  19. CARBOPLATIN. [Suspect]
     Active Substance: CARBOPLATIN
     Indication: OVARIAN CANCER
     Dosage: 530.0MG ONCE/SINGLE ADMINISTRATION
     Route: 065
     Dates: start: 20200901, end: 20200901
  20. PACLITAXEL. [Suspect]
     Active Substance: PACLITAXEL
     Indication: OVARIAN CANCER
     Dosage: 289.0MG ONCE/SINGLE ADMINISTRATION
     Route: 065
     Dates: start: 20200901, end: 20200901
  21. BEVACIZUMAB. [Suspect]
     Active Substance: BEVACIZUMAB
     Indication: OVARIAN CANCER
     Dosage: 990.0MG ONCE/SINGLE ADMINISTRATION
     Route: 065
     Dates: start: 20200721, end: 20200721
  22. BEVACIZUMAB. [Suspect]
     Active Substance: BEVACIZUMAB
     Indication: OVARIAN CANCER
     Dosage: 990.0MG ONCE/SINGLE ADMINISTRATION
     Route: 065
     Dates: start: 20201013, end: 20201013
  23. DURVALUMAB. [Suspect]
     Active Substance: DURVALUMAB
     Indication: OVARIAN CANCER
     Dosage: 1120.0MG ONCE/SINGLE ADMINISTRATION
     Route: 042
     Dates: start: 20201124, end: 20201124
  24. CARBOPLATIN. [Suspect]
     Active Substance: CARBOPLATIN
     Indication: OVARIAN CANCER
     Dosage: 530.0MG ONCE/SINGLE ADMINISTRATION
     Route: 065
     Dates: start: 20201013, end: 20201013
  25. BEVACIZUMAB. [Suspect]
     Active Substance: BEVACIZUMAB
     Indication: OVARIAN CANCER
     Dosage: 915.0MG ONCE/SINGLE ADMINISTRATION
     Route: 065
     Dates: start: 20210216, end: 20210216
  26. BEVACIZUMAB. [Suspect]
     Active Substance: BEVACIZUMAB
     Indication: OVARIAN CANCER
     Dosage: 915.0MG ONCE/SINGLE ADMINISTRATION
     Route: 065
     Dates: start: 20210420, end: 20210420
  27. DURVALUMAB. [Suspect]
     Active Substance: DURVALUMAB
     Indication: OVARIAN CANCER
     Dosage: 1120.0MG ONCE/SINGLE ADMINISTRATION
     Route: 042
     Dates: start: 20200901, end: 20200901
  28. PACLITAXEL. [Suspect]
     Active Substance: PACLITAXEL
     Indication: OVARIAN CANCER
     Dosage: 289.0MG ONCE/SINGLE ADMINISTRATION
     Route: 065
     Dates: start: 20200813, end: 20200813
  29. BEVACIZUMAB. [Suspect]
     Active Substance: BEVACIZUMAB
     Indication: OVARIAN CANCER
     Dosage: 915.0MG ONCE/SINGLE ADMINISTRATION
     Route: 065
     Dates: start: 20201103, end: 20201103
  30. BURANA [Concomitant]
     Active Substance: IBUPROFEN
     Indication: PROCEDURAL PAIN
     Route: 048
     Dates: start: 20200608
  31. PEGORION [Concomitant]
     Active Substance: POLYETHYLENE GLYCOL 4000
     Indication: CONSTIPATION PROPHYLAXIS
     Route: 048
     Dates: start: 20200630
  32. ESOMEPRAZOL [Concomitant]
     Active Substance: ESOMEPRAZOLE
     Indication: PROPHYLAXIS
     Route: 048
     Dates: start: 20200813, end: 20210329
  33. CARBIMAZOLE [Concomitant]
     Active Substance: CARBIMAZOLE
     Indication: HYPERTHYROIDISM
     Route: 048
     Dates: start: 20201110, end: 20210201
  34. DURVALUMAB. [Suspect]
     Active Substance: DURVALUMAB
     Indication: OVARIAN CANCER
     Dosage: 1120.0MG ONCE/SINGLE ADMINISTRATION
     Route: 042
     Dates: start: 20200721, end: 20200721
  35. DURVALUMAB. [Suspect]
     Active Substance: DURVALUMAB
     Indication: OVARIAN CANCER
     Dosage: 1120.0MG ONCE/SINGLE ADMINISTRATION
     Route: 042
     Dates: start: 20200813, end: 20200813
  36. BEVACIZUMAB. [Suspect]
     Active Substance: BEVACIZUMAB
     Indication: OVARIAN CANCER
     Dosage: 915.0MG ONCE/SINGLE ADMINISTRATION
     Route: 065
     Dates: start: 20201215, end: 20201215
  37. BEVACIZUMAB. [Suspect]
     Active Substance: BEVACIZUMAB
     Indication: OVARIAN CANCER
     Dosage: 915.0MG ONCE/SINGLE ADMINISTRATION
     Route: 065
     Dates: start: 20210105, end: 20210105
  38. BEVACIZUMAB. [Suspect]
     Active Substance: BEVACIZUMAB
     Indication: OVARIAN CANCER
     Dosage: 915.0MG ONCE/SINGLE ADMINISTRATION
     Route: 065
     Dates: start: 20210511, end: 20210511
  39. BEVACIZUMAB. [Suspect]
     Active Substance: BEVACIZUMAB
     Indication: OVARIAN CANCER
     Dosage: 915.0MG ONCE/SINGLE ADMINISTRATION
     Route: 065
     Dates: start: 20210601, end: 20210601
  40. LOPERAMID [Concomitant]
     Active Substance: LOPERAMIDE
     Indication: DIARRHOEA
     Route: 048
     Dates: start: 20200813
  41. CARBIMAZOLE [Concomitant]
     Active Substance: CARBIMAZOLE
     Indication: HYPERTHYROIDISM
     Route: 048
     Dates: start: 20201016, end: 20201109

REACTIONS (1)
  - Liver function test increased [Recovered/Resolved]

NARRATIVE: CASE EVENT DATE: 20210104
